FAERS Safety Report 8518906 (Version 3)
Quarter: 2012Q4

REPORT INFORMATION
  Report Type: 
  Country: US (occurrence: US)
  Receive Date: 20120418
  Receipt Date: 20121226
  Transmission Date: 20130627
  Serious: Yes (Hospitalization, Other)
  Sender: FDA-Public Use
  Company Number: US-BAYER-2012-036864

PATIENT
  Age: 46 Year
  Sex: Female
  Weight: 73 kg

DRUGS (2)
  1. YAZ [Suspect]
     Indication: MENSTRUAL IRREGULARITY
     Dosage: UNK
     Dates: start: 2002, end: 20080502
  2. MECLOFENAMATE SODIUM [Concomitant]
     Indication: DYSMENORRHEA
     Dosage: UNK
     Dates: start: 20080509

REACTIONS (8)
  - Deep vein thrombosis [Recovered/Resolved]
  - Hysterectomy [None]
  - Pain [None]
  - Injury [None]
  - General physical health deterioration [None]
  - Anxiety [None]
  - Emotional distress [None]
  - Off label use [None]
